FAERS Safety Report 8683032 (Version 2)
Quarter: 2012Q4

REPORT INFORMATION
  Report Type: Report from Study
  Country: SI (occurrence: SI)
  Receive Date: 20120725
  Receipt Date: 20120906
  Transmission Date: 20130627
  Serious: Yes (Hospitalization, Other)
  Sender: FDA-Public Use
  Company Number: PHHO2012SI010858

PATIENT
  Age: 67 Year
  Sex: Male
  Weight: 58 kg

DRUGS (7)
  1. ACETYLSALICYLIC ACID [Suspect]
     Indication: THROMBOCYTOSIS
     Dosage: 100 mg, QD
     Route: 048
     Dates: start: 20120615
  2. INC424 [Suspect]
     Dosage: 20 mg, BID
     Route: 048
     Dates: start: 20120706
  3. RAMIPRIL [Concomitant]
     Indication: HYPERTENSION
     Dosage: 5 mg, QD
     Route: 048
     Dates: start: 20020415
  4. BISOPROLOL [Concomitant]
     Indication: HYPERTENSION
     Dosage: 2.5 mg, QD
     Route: 048
     Dates: start: 20120415
  5. DOXAZOSIN [Concomitant]
     Indication: HYPERTENSION
     Dosage: 2 mg, BID
     Route: 048
  6. TORASEMIDE [Concomitant]
     Indication: HYPERTENSION
     Dosage: 5 UNK, Every 3 day
     Route: 048
  7. PANTOPRAZOLE [Concomitant]
     Indication: PROPHYLAXIS
     Dosage: 20 mg, BID
     Route: 048

REACTIONS (1)
  - Haematuria [Recovered/Resolved]
